FAERS Safety Report 18910518 (Version 2)
Quarter: 2021Q1

REPORT INFORMATION
  Report Type: Spontaneous
  Country: US (occurrence: US)
  Receive Date: 20210218
  Receipt Date: 20210304
  Transmission Date: 20210420
  Serious: Yes (Other)
  Sender: FDA-Public Use
  Company Number: US-ENDO PHARMACEUTICALS INC-2021-001120

PATIENT
  Age: 5 Year
  Sex: Male
  Weight: 15.78 kg

DRUGS (5)
  1. VIGABATRIN. [Suspect]
     Active Substance: VIGABATRIN
     Indication: EPILEPSY
     Dosage: 1000 MG, BID
     Route: 065
     Dates: start: 20201230
  2. SABRIL [Concomitant]
     Active Substance: VIGABATRIN
     Indication: SEIZURE
  3. VIGABATRIN. [Suspect]
     Active Substance: VIGABATRIN
     Indication: EPILEPSY
     Dosage: 1000 MG, BID
     Route: 065
     Dates: start: 20201230
  4. SABRIL [Concomitant]
     Active Substance: VIGABATRIN
     Indication: EPILEPSY
     Dosage: 1000 MG, BID
     Route: 048
     Dates: end: 202012
  5. LEVETIRACETAM. [Concomitant]
     Active Substance: LEVETIRACETAM
     Indication: PRODUCT USED FOR UNKNOWN INDICATION
     Dosage: UNK UNKNOWN, UNKNOWN
     Route: 065

REACTIONS (2)
  - Seizure [Unknown]
  - Product substitution issue [Unknown]

NARRATIVE: CASE EVENT DATE: 20201230
